FAERS Safety Report 5457084-1 (Version None)
Quarter: 2007Q3

REPORT INFORMATION
  Report Type: 
  Country: None (occurrence: None)
  Receive Date: 20070918
  Receipt Date: 20070906
  Transmission Date: 20080115
  Serious: Yes (Hospitalization)
  Sender: FDA-Public Use
  Company Number: FR-PFIZER INC-2007075330

PATIENT
  Sex: Female

DRUGS (4)
  1. TRIFLUCAN [Suspect]
     Indication: CRYPTOCOCCOSIS
     Route: 048
  2. VFEND [Suspect]
     Indication: CRYPTOCOCCOSIS
  3. AMPHOTERICIN B [Concomitant]
  4. FLUCYTOSINE [Concomitant]

REACTIONS (1)
  - ARTHRITIS BACTERIAL [None]
